FAERS Safety Report 8611244-7 (Version None)
Quarter: 2012Q3

REPORT INFORMATION
  Report Type: 
  Country: None (occurrence: None)
  Receive Date: 20120822
  Receipt Date: 20120814
  Transmission Date: 20120928
  Serious: Yes (Hospitalization, Other)
  Sender: FDA-Public Use
  Company Number: US-ASTELLAS-2012US006003

PATIENT
  Sex: Female

DRUGS (2)
  1. COUMADIN [Suspect]
     Indication: AORTIC VALVE REPLACEMENT
     Dosage: UNK
     Route: 065
  2. PROGRAF [Suspect]
     Indication: RENAL TRANSPLANT
     Dosage: 4 MG, BID
     Route: 048
     Dates: start: 20071225

REACTIONS (10)
  - HAEMORRHAGIC ANAEMIA [None]
  - DRUG INEFFECTIVE [None]
  - AORTIC VALVE REPLACEMENT [None]
  - HYPERTENSION [None]
  - TOXICITY TO VARIOUS AGENTS [None]
  - COAGULOPATHY [None]
  - DEEP VEIN THROMBOSIS [None]
  - KIDNEY TRANSPLANT REJECTION [None]
  - HAEMATOCHEZIA [None]
  - CATHETER SITE HAEMORRHAGE [None]
